FAERS Safety Report 21131682 (Version 1)
Quarter: 2022Q3

REPORT INFORMATION
  Report Type: Report from Study
  Country: CN (occurrence: CN)
  Receive Date: 20220726
  Receipt Date: 20220726
  Transmission Date: 20221027
  Serious: Yes (Death)
  Sender: FDA-Public Use
  Company Number: CN-PFIZER INC-202200970183

PATIENT
  Age: 68 Year
  Sex: Male

DRUGS (3)
  1. LINEZOLID [Suspect]
     Active Substance: LINEZOLID
     Indication: Pulmonary nocardiosis
  2. AMIKACIN [Suspect]
     Active Substance: AMIKACIN
     Indication: Pulmonary nocardiosis
  3. IMIPENEM [Suspect]
     Active Substance: IMIPENEM
     Indication: Pulmonary nocardiosis

REACTIONS (1)
  - Drug ineffective [Fatal]
